FAERS Safety Report 7717908-1 (Version None)
Quarter: 2011Q3

REPORT INFORMATION
  Report Type: 
  Country: None (occurrence: None)
  Receive Date: 20110830
  Receipt Date: 20110816
  Transmission Date: 20111222
  Serious: Yes (Hospitalization, Other)
  Sender: FDA-Public Use
  Company Number: US-JNJFOC-20110807583

PATIENT
  Sex: Female
  Weight: 71.44 kg

DRUGS (1)
  1. REMICADE [Suspect]
     Indication: CROHN'S DISEASE
     Route: 042
     Dates: start: 20110720

REACTIONS (12)
  - PHARYNGEAL OEDEMA [None]
  - APHASIA [None]
  - BONE PAIN [None]
  - VOMITING [None]
  - PRURITUS [None]
  - MUSCULOSKELETAL STIFFNESS [None]
  - APHONIA [None]
  - NAUSEA [None]
  - HYPOKINESIA [None]
  - ORAL DISORDER [None]
  - URTICARIA [None]
  - THROAT IRRITATION [None]
